FAERS Safety Report 10149164 (Version 3)
Quarter: 2014Q2

REPORT INFORMATION
  Report Type: Report from Study
  Country: CA (occurrence: CA)
  Receive Date: 20140502
  Receipt Date: 20140507
  Transmission Date: 20141212
  Serious: Yes (Disabling)
  Sender: FDA-Public Use
  Company Number: CA-JNJFOC-20140408333

PATIENT
  Sex: Male
  Weight: 74.84 kg

DRUGS (4)
  1. REMICADE [Suspect]
     Indication: CROHN^S DISEASE
     Dosage: WEEK 2, 5 MG/KG INDUCTION WITH A 1 FOR 10 MG/KG RESCUE DOSE, THEN 5Q8 WEEK
     Route: 042
  2. REMICADE [Suspect]
     Indication: CROHN^S DISEASE
     Dosage: THIRD DOSE - RESCUE DOSE, 5 MG/KG INDUCTION WITH A 1 FOR 10 MG/KG RESCUE DOSE, THEN 5Q8 WEEK
     Route: 042
  3. REMICADE [Suspect]
     Indication: CROHN^S DISEASE
     Dosage: WEEK 0; 5 MG/KG INDUCTION WITH A 1 FOR 10 MG/KG RESCUE DOSE, THEN 5Q8 WEEK
     Route: 042
     Dates: start: 20140331
  4. PREDNISONE [Suspect]
     Indication: PRODUCT USED FOR UNKNOWN INDICATION
     Route: 065

REACTIONS (2)
  - Chorioretinopathy [Not Recovered/Not Resolved]
  - Drug ineffective [Unknown]
